FAERS Safety Report 4979843-1 (Version None)
Quarter: 2006Q2

REPORT INFORMATION
  Report Type: 
  Country: None (occurrence: None)
  Receive Date: 20060421
  Receipt Date: 20060111
  Transmission Date: 20061013
  Serious: Yes (Hospitalization, Other)
  Sender: FDA-Public Use
  Company Number: US-MERCK-0601USA01328

PATIENT
  Age: 62 Year
  Sex: Male
  Weight: 123 kg

DRUGS (11)
  1. VIOXX [Suspect]
     Indication: PAIN IN EXTREMITY
     Route: 048
     Dates: start: 20000616, end: 20020301
  2. ATENOLOL [Concomitant]
     Indication: HYPERTENSION
     Route: 065
     Dates: start: 19850101, end: 20050720
  3. AGRYLIN [Concomitant]
     Route: 065
  4. ALLOPURINOL MSD [Concomitant]
     Indication: GOUT
     Route: 065
  5. ALTACE [Concomitant]
     Indication: HYPERTENSION
     Route: 065
  6. LORAZEPAM [Concomitant]
     Indication: ANXIETY
     Route: 065
  7. NEURONTIN [Concomitant]
     Indication: PAIN
     Route: 065
  8. PRILOSEC [Concomitant]
     Indication: GASTROOESOPHAGEAL REFLUX DISEASE
     Route: 065
  9. ULTRAVATE [Concomitant]
     Indication: SKIN DISORDER
     Route: 065
  10. ZOLOFT [Concomitant]
     Indication: DEPRESSION
     Route: 065
  11. GLUCOTROL [Concomitant]
     Route: 065

REACTIONS (7)
  - CEREBROVASCULAR ACCIDENT [None]
  - ESSENTIAL THROMBOCYTHAEMIA [None]
  - INJURY [None]
  - LACERATION [None]
  - MYOCARDIAL INFARCTION [None]
  - RENAL FAILURE CHRONIC [None]
  - SUICIDAL IDEATION [None]
